FAERS Safety Report 7153523-9 (Version None)
Quarter: 2010Q4

REPORT INFORMATION
  Report Type: 
  Country: None (occurrence: None)
  Receive Date: 20101213
  Receipt Date: 20101205
  Transmission Date: 20110411
  Serious: Yes (Other)
  Sender: FDA-Public Use
  Company Number: NL-AMGEN-NLDSP2010007524

PATIENT

DRUGS (5)
  1. NEULASTA [Suspect]
     Indication: CHEMOTHERAPY
     Dosage: UNK
     Dates: start: 20101114
  2. NEXIUM [Concomitant]
     Dosage: 40 MG, UNK
  3. DEXAMETHASONE [Concomitant]
     Dosage: UNK UNK, PER CHEMO REGIM
  4. DICLOFENAC [Concomitant]
     Dosage: UNK UNK, PER CHEMO REGIM
  5. PARACETAMOL [Concomitant]
     Dosage: UNK UNK, PRN

REACTIONS (3)
  - BONE PAIN [None]
  - FEELING ABNORMAL [None]
  - FULL BLOOD COUNT DECREASED [None]
